FAERS Safety Report 10156675 (Version 1)
Quarter: 2014Q2

REPORT INFORMATION
  Report Type: Spontaneous
  Country: US (occurrence: None)
  Receive Date: 20140506
  Receipt Date: 20140506
  Transmission Date: 20141212
  Serious: Yes (Life-Threatening, Hospitalization)
  Sender: FDA-Public Use
  Company Number: None

PATIENT
  Age: 26 Year
  Sex: Female
  Weight: 104.33 kg

DRUGS (2)
  1. PROAIR HFA 90 MCG [Suspect]
     Indication: ASTHMA
     Dosage: 2 METERED DOSES ?AS NEEDED ?INHALATION
     Route: 055
     Dates: start: 20140301, end: 20140503
  2. ALBUTEROL NEBULIZER [Suspect]
     Indication: ASTHMA
     Dosage: NEBULIZER TREATMENT ?EVERY 4 HOURS?INHALATION
     Route: 055
     Dates: start: 20140504, end: 20140504

REACTIONS (2)
  - Drug ineffective [None]
  - Bronchospasm [None]
